FAERS Safety Report 6241998-9 (Version None)
Quarter: 2009Q2

REPORT INFORMATION
  Report Type: 
  Country: None (occurrence: None)
  Receive Date: 20090622
  Receipt Date: 20090610
  Transmission Date: 20091009
  Serious: Yes (Other)
  Sender: FDA-Public Use
  Company Number: CHPA2009US13361

PATIENT
  Age: 67 Year
  Sex: Female
  Weight: 74.8 kg

DRUGS (1)
  1. NICOTINE [Suspect]
     Indication: SMOKING CESSATION THERAPY
     Dosage: 21 MG, QD, TRANSDERMAL
     Route: 062
     Dates: start: 20090522, end: 20090522

REACTIONS (15)
  - ABDOMINAL PAIN [None]
  - APPLICATION SITE REACTION [None]
  - BURNING SENSATION [None]
  - CONTUSION [None]
  - DIARRHOEA [None]
  - DIZZINESS [None]
  - EYE SWELLING [None]
  - NERVOUSNESS [None]
  - OEDEMA PERIPHERAL [None]
  - PAIN IN EXTREMITY [None]
  - SALIVARY HYPERSECRETION [None]
  - SKIN DISCOLOURATION [None]
  - THROMBOSIS [None]
  - TREMOR [None]
  - VISION BLURRED [None]
